FAERS Safety Report 8198783-0 (Version None)
Quarter: 2012Q1

REPORT INFORMATION
  Report Type: 
  Country: None (occurrence: None)
  Receive Date: 20120309
  Receipt Date: 20120210
  Transmission Date: 20120608
  Serious: No
  Sender: FDA-Public Use
  Company Number: US-AMGEN-USASP2012009174

PATIENT
  Age: 79 Year
  Sex: Female

DRUGS (5)
  1. PROLIA [Suspect]
     Indication: OSTEOPOROSIS POSTMENOPAUSAL
     Dosage: UNK UNK, Q6MO
     Route: 058
     Dates: start: 20111229
  2. ZIAC [Concomitant]
  3. VITAMIN TAB [Concomitant]
  4. ALTACE [Concomitant]
  5. CLARINEX [Concomitant]

REACTIONS (3)
  - PARAESTHESIA [None]
  - PAIN IN EXTREMITY [None]
  - HYPOAESTHESIA [None]
